FAERS Safety Report 16046901 (Version 1)
Quarter: 2019Q1

REPORT INFORMATION
  Report Type: Spontaneous
  Country: US (occurrence: US)
  Receive Date: 20190207
  Receipt Date: 20190207
  Transmission Date: 20190418
  Serious: No
  Sender: FDA-Public Use
  Company Number: None

PATIENT
  Age: 29 Year
  Sex: Female

DRUGS (1)
  1. GLATIRAMER 40MG PFS INJ (12/BOX) [Suspect]
     Active Substance: GLATIRAMER
     Route: 058
     Dates: start: 201803

REACTIONS (4)
  - Pruritus [None]
  - Vomiting [None]
  - Musculoskeletal disorder [None]
  - Hypertension [None]

NARRATIVE: CASE EVENT DATE: 20190129
